FAERS Safety Report 18462978 (Version 1)
Quarter: 2020Q4

REPORT INFORMATION
  Report Type: Spontaneous
  Country: US (occurrence: US)
  Receive Date: 20201104
  Receipt Date: 20201104
  Transmission Date: 20210114
  Serious: Yes (Hospitalization, Other)
  Sender: FDA-Public Use
  Company Number: US-GILEAD-2020-0502658

PATIENT
  Age: 53 Year
  Sex: Male

DRUGS (5)
  1. ALLOPURINOL. [Concomitant]
     Active Substance: ALLOPURINOL
  2. R GEMOX [Concomitant]
     Indication: B-CELL LYMPHOMA
     Dosage: 1 DOSAGE FORM, ONCE
  3. PHOSLO [Concomitant]
     Active Substance: CALCIUM ACETATE
  4. YESCARTA [Suspect]
     Active Substance: AXICABTAGENE CILOLEUCEL
     Indication: HIGH-GRADE B-CELL LYMPHOMA
     Dosage: 68 ML, ONCE; 2 ? 10^6 CAR-T POSITIVE VIABLE T CELLS PER KG
     Route: 042
     Dates: start: 20201005, end: 20201005
  5. DEXAMETHASONE. [Concomitant]
     Active Substance: DEXAMETHASONE
     Indication: B-CELL LYMPHOMA
     Dosage: 40 MG, QD
     Route: 048

REACTIONS (3)
  - Neurotoxicity [Recovering/Resolving]
  - Cytokine release syndrome [Recovered/Resolved]
  - Haemophagocytic lymphohistiocytosis [Recovered/Resolved]

NARRATIVE: CASE EVENT DATE: 20201005
